FAERS Safety Report 18035592 (Version 1)
Quarter: 2020Q3

REPORT INFORMATION
  Report Type: Spontaneous
  Country: US (occurrence: US)
  Receive Date: 20200717
  Receipt Date: 20200717
  Transmission Date: 20201103
  Serious: Yes (Hospitalization, Other)
  Sender: FDA-Public Use
  Company Number: US-ROCHE-2642890

PATIENT
  Age: 77 Year
  Sex: Female

DRUGS (3)
  1. ESBRIET [Suspect]
     Active Substance: PIRFENIDONE
     Indication: IDIOPATHIC PULMONARY FIBROSIS
     Route: 048
     Dates: start: 20150807
  2. ASPIRIN. [Concomitant]
     Active Substance: ASPIRIN
  3. PRAVACHOL [Concomitant]
     Active Substance: PRAVASTATIN SODIUM

REACTIONS (2)
  - Blood count abnormal [Unknown]
  - Heart rate increased [Unknown]

NARRATIVE: CASE EVENT DATE: 202006
